FAERS Safety Report 5158134-2 (Version None)
Quarter: 2006Q4

REPORT INFORMATION
  Report Type: 
  Country: None (occurrence: None)
  Receive Date: 20061117
  Receipt Date: 20061101
  Transmission Date: 20070319
  Serious: Yes (Life-Threatening, Hospitalization)
  Sender: FDA-Public Use
  Company Number: 2006EU003010

PATIENT
  Age: 62 Year
  Sex: Female
  Weight: 93 kg

DRUGS (4)
  1. VESICARE [Suspect]
     Indication: HYPERTONIC BLADDER
     Dosage: 5 MG, D, ORAL
     Route: 048
     Dates: start: 20051114
  2. ACETAMINOPHEN W/ CODEINE [Concomitant]
  3. DICLOFENAC (DICLOFENAC POTASSIUM) [Concomitant]
  4. LEVOTHYROXINE SODIUM [Concomitant]

REACTIONS (2)
  - DEEP VEIN THROMBOSIS [None]
  - PULMONARY EMBOLISM [None]
